FAERS Safety Report 23917899 (Version 1)
Quarter: 2024Q2

REPORT INFORMATION
  Report Type: Spontaneous
  Country: DE (occurrence: DE)
  Receive Date: 20240530
  Receipt Date: 20240530
  Transmission Date: 20240715
  Serious: Yes (Hospitalization)
  Sender: FDA-Public Use
  Company Number: DE-ROCHE-3563426

PATIENT
  Age: 67 Year
  Sex: Female
  Weight: 54.3 kg

DRUGS (9)
  1. ALLOPURINOL [Suspect]
     Active Substance: ALLOPURINOL
     Indication: Product used for unknown indication
     Dosage: UNK
     Route: 065
  2. CIPROFLOXACIN [Suspect]
     Active Substance: CIPROFLOXACIN
     Indication: Neutropenia
     Dosage: UNK
     Route: 065
  3. CYCLOPHOSPHAMIDE [Suspect]
     Active Substance: CYCLOPHOSPHAMIDE
     Indication: Diffuse large B-cell lymphoma
     Dosage: 1124.25 MG, TIW (ON 26/APR/2024, RECEIVED MOST RECENT DOSE 1100 MG OF CYCLOPHOSPHAMIDE.)
     Route: 042
     Dates: start: 20240406
  4. COTRIM [Suspect]
     Active Substance: SULFAMETHOXAZOLE\TRIMETHOPRIM
     Indication: Product used for unknown indication
     Dosage: UNK
     Route: 065
  5. DOXORUBICIN [Suspect]
     Active Substance: DOXORUBICIN
     Indication: Diffuse large B-cell lymphoma
     Dosage: 74.95 MG, TIW (ON 26/APR/2024, RECEIVED MOST RECENT DOSE 75 MG OF DOXORUBICIN)
     Route: 042
     Dates: start: 20240406
  6. PREDNISOLONE [Suspect]
     Active Substance: PREDNISOLONE
     Indication: Diffuse large B-cell lymphoma
     Dosage: 100 MG, TIW (ON 29/APR/2024, RECEIVED MOST RECENT DOSE 100 MG OF PREDNISOLONE.)
     Route: 048
     Dates: start: 20240405
  7. NEUPOGEN [Concomitant]
     Active Substance: FILGRASTIM
     Indication: Neutropenia
     Dosage: UNK
     Route: 065
  8. POLATUZUMAB VEDOTIN [Concomitant]
     Active Substance: POLATUZUMAB VEDOTIN
     Indication: Diffuse large B-cell lymphoma
     Dosage: 102.42 MG, TIW (ON 25/APR/2024, RECEIVED MOST RECENT DOSE 102 MG OF POLATUZUMAB VEDOTIN.)
     Route: 065
     Dates: start: 20240406
  9. RITUXIMAB [Concomitant]
     Active Substance: RITUXIMAB
     Indication: Diffuse large B-cell lymphoma
     Dosage: 562.13 MG, TIW (ON 25/APR/2024, RECEIVED MOST RECENT DOSE 562 MG OF RITUXIMAB.)
     Route: 065
     Dates: start: 20240405

REACTIONS (1)
  - Acute kidney injury [Not Recovered/Not Resolved]

NARRATIVE: CASE EVENT DATE: 20240510
